FAERS Safety Report 5897793-3 (Version None)
Quarter: 2008Q3

REPORT INFORMATION
  Report Type: 
  Country: None (occurrence: None)
  Receive Date: 20080924
  Receipt Date: 20080924
  Transmission Date: 20090109
  Serious: Yes (Other)
  Sender: FDA-Public Use
  Company Number: None

PATIENT
  Age: 18 Year
  Sex: Female
  Weight: 39.0093 kg

DRUGS (1)
  1. ATROVENT [Suspect]
     Indication: WHEEZING
     Dosage: 2.5ML BID INHAL
     Route: 055
     Dates: start: 20020103, end: 20080117

REACTIONS (1)
  - BLADDER CATHETERISATION [None]
